FAERS Safety Report 10057508 (Version 3)
Quarter: 2014Q2

REPORT INFORMATION
  Report Type: Spontaneous
  Country: TR (occurrence: TR)
  Receive Date: 20140403
  Receipt Date: 20140507
  Transmission Date: 20141212
  Serious: Yes (Other)
  Sender: FDA-Public Use
  Company Number: TR-VERTEX PHARMACEUTICALS INC-2014-001752

PATIENT
  Age: 40 Year
  Sex: Male

DRUGS (3)
  1. INCIVO [Suspect]
     Indication: CHRONIC HEPATITIS C
     Dosage: UNK
     Route: 048
  2. RIBAVIRIN [Suspect]
     Indication: CHRONIC HEPATITIS C
     Dosage: UNK
  3. PEGINTERFERON ALFA [Suspect]
     Indication: CHRONIC HEPATITIS C
     Dosage: UNK

REACTIONS (11)
  - Depression [Unknown]
  - Penile pain [Recovered/Resolved]
  - Nasopharyngitis [Unknown]
  - Anxiety [Unknown]
  - Pruritus genital [Recovered/Resolved]
  - Insomnia [Unknown]
  - Restlessness [Unknown]
  - Anorectal disorder [Unknown]
  - Asthenia [Unknown]
  - Pruritus [Unknown]
  - Anaemia [Unknown]
